FAERS Safety Report 7114327-6 (Version None)
Quarter: 2010Q4

REPORT INFORMATION
  Report Type: 
  Country: None (occurrence: None)
  Receive Date: 20101119
  Receipt Date: 20101108
  Transmission Date: 20110411
  Serious: Yes (Other)
  Sender: FDA-Public Use
  Company Number: JP-AMGEN-JPNCT2010005258

PATIENT

DRUGS (10)
  1. PANITUMUMAB [Suspect]
     Indication: COLORECTAL CANCER
     Dosage: 6 MG/KG, Q2WK
     Route: 041
     Dates: start: 20100820, end: 20100903
  2. FLURBIPROFEN [Concomitant]
     Route: 042
  3. SANDOSTATIN [Concomitant]
     Route: 042
  4. ANPEC [Concomitant]
     Route: 054
  5. VOLMAGEN [Concomitant]
     Route: 054
  6. DUROTEP MT PATCH [Concomitant]
     Route: 062
  7. PRIMPERAN [Concomitant]
     Route: 042
  8. BETAMETHASONE [Concomitant]
     Route: 042
  9. CEFON [Concomitant]
     Route: 042
  10. ZYVOX [Concomitant]
     Route: 042

REACTIONS (5)
  - CHOLECYSTITIS [None]
  - COLORECTAL CANCER RECURRENT [None]
  - DERMATITIS ACNEIFORM [None]
  - MALIGNANT NEOPLASM PROGRESSION [None]
  - PLATELET COUNT DECREASED [None]
